FAERS Safety Report 13668884 (Version 1)
Quarter: 2017Q2

REPORT INFORMATION
  Report Type: Spontaneous
  Country: US (occurrence: US)
  Receive Date: 20170620
  Receipt Date: 20170620
  Transmission Date: 20170830
  Serious: No
  Sender: FDA-Public Use
  Company Number: US-BAYER-2017-108621

PATIENT
  Age: 68 Year
  Sex: Male
  Weight: 133 kg

DRUGS (1)
  1. MIRALAX [Suspect]
     Active Substance: POLYETHYLENE GLYCOL 3350
     Indication: GASTROINTESTINAL DISORDER
     Dosage: 1 DF, EVERY 4-6 HOURS
     Route: 048
     Dates: start: 20170602

REACTIONS (3)
  - Drug prescribing error [Unknown]
  - Incorrect dosage administered [Unknown]
  - Drug effect incomplete [Unknown]

NARRATIVE: CASE EVENT DATE: 20170602
